FAERS Safety Report 9788749 (Version 1)
Quarter: 2013Q4

REPORT INFORMATION
  Report Type: Spontaneous
  Country: US (occurrence: US)
  Receive Date: 20131230
  Receipt Date: 20131230
  Transmission Date: 20140711
  Serious: No
  Sender: FDA-Public Use
  Company Number: US-009507513-1312USA008991

PATIENT
  Sex: Male

DRUGS (2)
  1. AFRIN [Suspect]
     Indication: PRODUCT USED FOR UNKNOWN INDICATION
     Dosage: UNK, UNKNOWN
     Route: 045
  2. AFRIN [Suspect]
     Dosage: UNK, UNKNOWN
     Route: 045

REACTIONS (3)
  - Paraesthesia [Unknown]
  - Expired drug administered [Unknown]
  - Product odour abnormal [Unknown]
